FAERS Safety Report 7037215-2 (Version None)
Quarter: 2010Q4

REPORT INFORMATION
  Report Type: 
  Country: None (occurrence: None)
  Receive Date: 20101011
  Receipt Date: 20100930
  Transmission Date: 20110411
  Serious: Yes (Hospitalization)
  Sender: FDA-Public Use
  Company Number: JP-ROCHE-725196

PATIENT
  Sex: Female

DRUGS (13)
  1. DENOSINE IV [Suspect]
     Indication: CYTOMEGALOVIRUS ENTEROCOLITIS
     Route: 042
     Dates: start: 20100809, end: 20100812
  2. DENOSINE IV [Suspect]
     Route: 042
     Dates: start: 20100813, end: 20100823
  3. SOLDEM [Concomitant]
     Route: 041
  4. HEPARIN SODIUM [Concomitant]
     Route: 051
  5. HICALIQ [Concomitant]
     Route: 042
  6. NEOLAMIN [Concomitant]
     Route: 042
  7. MULTIPLE VITS [Concomitant]
     Route: 041
  8. MEDLENIK [Concomitant]
     Route: 042
  9. INTRAFAT [Concomitant]
     Route: 042
  10. NEO-MINOPHAGEN C [Concomitant]
     Route: 042
  11. ALBUMIN (HUMAN) [Concomitant]
     Route: 042
  12. LASIX [Concomitant]
     Dosage: TDD= 20MG/ML X 0.5
     Route: 042
  13. GAMIMUNE N 5% [Concomitant]
     Route: 051
     Dates: start: 20100813

REACTIONS (1)
  - BONE MARROW FAILURE [None]
